FAERS Safety Report 4559009-X (Version None)
Quarter: 2005Q1

REPORT INFORMATION
  Report Type: 
  Country: None (occurrence: None)
  Receive Date: 20050124
  Receipt Date: 20050113
  Transmission Date: 20050727
  Serious: Yes (Hospitalization)
  Sender: FDA-Public Use
  Company Number: FR-BRISTOL-MYERS SQUIBB COMPANY-12824769

PATIENT
  Age: 87 Year
  Sex: Female

DRUGS (13)
  1. COUMADIN [Suspect]
     Indication: PHLEBOTHROMBOSIS
     Route: 048
     Dates: start: 20031101, end: 20041208
  2. PAROXETINE HCL [Interacting]
     Route: 048
     Dates: start: 20040921, end: 20041208
  3. ECONAZOL NITRATE [Interacting]
     Indication: URINARY TRACT INFECTION
     Route: 067
     Dates: start: 20041201, end: 20041207
  4. BACTRIM DS [Interacting]
     Indication: URINARY TRACT INFECTION
     Route: 048
     Dates: start: 20041201, end: 20041207
  5. POTASSIUM CHLORIDE [Concomitant]
  6. BURINEX [Concomitant]
  7. DITROPAN [Concomitant]
  8. LORAZEPAM [Concomitant]
  9. FORLAX [Concomitant]
  10. LAMALINE [Concomitant]
  11. SPIROCTAN [Concomitant]
  12. DEBRIDAT [Concomitant]
  13. FUNGIZONE [Concomitant]

REACTIONS (3)
  - ABDOMINAL PAIN [None]
  - DRUG INTERACTION [None]
  - RECTAL HAEMORRHAGE [None]
